FAERS Safety Report 6331075-0 (Version None)
Quarter: 2009Q3

REPORT INFORMATION
  Report Type: 
  Country: None (occurrence: None)
  Receive Date: 20090827
  Receipt Date: 20090821
  Transmission Date: 20100115
  Serious: Yes (Other)
  Sender: FDA-Public Use
  Company Number: FR-GENENTECH-289147

PATIENT

DRUGS (1)
  1. MABTHERA [Suspect]
     Indication: TRANSPLANT

REACTIONS (7)
  - ASPERGILLOSIS [None]
  - CYTOMEGALOVIRUS INFECTION [None]
  - LUNG DISORDER [None]
  - MENINGITIS CRYPTOCOCCAL [None]
  - NEUROPATHY PERIPHERAL [None]
  - PNEUMOCYSTIS JIROVECI PNEUMONIA [None]
  - SEPSIS [None]
